FAERS Safety Report 7764647-7 (Version None)
Quarter: 2011Q3

REPORT INFORMATION
  Report Type: 
  Country: None (occurrence: None)
  Receive Date: 20110921
  Receipt Date: 20110916
  Transmission Date: 20111222
  Serious: Yes (Other)
  Sender: FDA-Public Use
  Company Number: PHHY2011BR50767

PATIENT
  Sex: Female

DRUGS (1)
  1. EXELON [Suspect]
     Indication: DEMENTIA ALZHEIMER'S TYPE
     Dosage: 1 DF, DAILY
     Route: 062

REACTIONS (3)
  - NEOPLASM MALIGNANT [None]
  - BONE NEOPLASM MALIGNANT [None]
  - NEOPLASM RECURRENCE [None]
